FAERS Safety Report 7962529-9 (Version None)
Quarter: 2011Q4

REPORT INFORMATION
  Report Type: 
  Country: None (occurrence: None)
  Receive Date: 20111207
  Receipt Date: 20111129
  Transmission Date: 20120403
  Serious: Yes (Death)
  Sender: FDA-Public Use
  Company Number: JP-GLAXOSMITHKLINE-B0725365A

PATIENT
  Sex: Male
  Weight: 48 kg

DRUGS (6)
  1. ACTOS [Concomitant]
     Dosage: 15MG PER DAY
     Route: 048
     Dates: start: 20110317
  2. PROMACTA [Suspect]
     Dosage: 25MG PER DAY
     Route: 048
     Dates: start: 20110512
  3. JANUVIA [Concomitant]
     Dosage: 50MG PER DAY
     Route: 048
     Dates: start: 20110317
  4. ADALAT [Concomitant]
     Dosage: 20MG PER DAY
     Route: 048
     Dates: start: 20110317, end: 20110331
  5. PROMACTA [Suspect]
     Indication: IDIOPATHIC THROMBOCYTOPENIC PURPURA
     Dosage: 12.5MG PER DAY
     Route: 048
     Dates: start: 20110317, end: 20110511
  6. AMLODIPINE BESYLATE + TELMISARTAN [Concomitant]
     Dosage: 1IUAX PER DAY
     Route: 048
     Dates: start: 20110331

REACTIONS (2)
  - INTERSTITIAL LUNG DISEASE [None]
  - MYOCARDIAL INFARCTION [None]
